FAERS Safety Report 6684189-X (Version None)
Quarter: 2010Q2

REPORT INFORMATION
  Report Type: 
  Country: None (occurrence: None)
  Receive Date: 20100416
  Receipt Date: 20100408
  Transmission Date: 20101027
  Serious: Yes (Hospitalization)
  Sender: FDA-Public Use
  Company Number: JP-MPIJNJ-2010-01544

PATIENT

DRUGS (22)
  1. VELCADE [Suspect]
     Indication: MULTIPLE MYELOMA
     Dosage: 1.6 MG/M2, UNK
     Route: 042
     Dates: start: 20100119, end: 20100129
  2. VELCADE [Suspect]
     Dosage: 1.6 MG/M2, UNK
     Route: 042
     Dates: start: 20100209, end: 20100216
  3. ADRIACIN [Concomitant]
     Indication: MULTIPLE MYELOMA
     Dosage: 14 MG, QD
     Route: 042
     Dates: start: 20100119, end: 20100122
  4. ADRIACIN [Concomitant]
     Dosage: 14 MG, QD
     Route: 042
     Dates: start: 20100209, end: 20100212
  5. DEXAMETHASONE [Concomitant]
     Indication: MULTIPLE MYELOMA
     Dosage: 10 MG, CYCLIC
     Route: 048
     Dates: start: 20100122, end: 20100221
  6. ONDANSETRON [Concomitant]
     Dosage: 4 MG, QD
     Route: 042
     Dates: start: 20100119, end: 20100122
  7. ONDANSETRON [Concomitant]
     Dosage: 4 MG, QD
     Route: 042
     Dates: start: 20100209, end: 20100212
  8. ZOMETA [Concomitant]
     Dosage: 4 MG, QD
     Route: 042
     Dates: start: 20100210, end: 20100210
  9. LACTEC G [Concomitant]
     Dosage: 1000 ML, QD
     Route: 042
     Dates: start: 20100216, end: 20100216
  10. ONEALFA [Concomitant]
     Dosage: UNK
     Dates: start: 20100119, end: 20100324
  11. MUNOBAL [Concomitant]
     Dosage: UNK
     Route: 048
     Dates: start: 20100119, end: 20100324
  12. FAMOTIDINE [Concomitant]
     Dosage: UNK
     Route: 048
     Dates: start: 20100119, end: 20100324
  13. MAGMITT [Concomitant]
     Dosage: 990 MG, QD
     Route: 048
     Dates: start: 20100119, end: 20100130
  14. MUCODYNE [Concomitant]
     Dosage: UNK
     Route: 048
     Dates: start: 20100119, end: 20100324
  15. COTRIM [Concomitant]
     Dosage: UNK
     Route: 048
     Dates: start: 20100122, end: 20100324
  16. SELTOUCH [Concomitant]
     Dosage: 1 DF, QD
     Route: 062
     Dates: start: 20100210, end: 20100210
  17. GARENOXACIN [Concomitant]
     Dosage: UNK
     Route: 048
     Dates: start: 20100216, end: 20100302
  18. GARENOXACIN [Concomitant]
     Dosage: UNK
  19. HUSTAZOL                           /00398402/ [Concomitant]
     Dosage: 80 MG, QD
     Route: 048
     Dates: start: 20100119, end: 20100121
  20. HUSTAZOL                           /00398402/ [Concomitant]
     Dosage: 40 MG, QD
     Route: 048
     Dates: start: 20100122, end: 20100125
  21. APRICOT KERNEL WATER [Concomitant]
     Dosage: UNK
     Route: 048
     Dates: start: 20100126, end: 20100214
  22. F.G. TROCHES [Concomitant]
     Dosage: 1 MG, QD
     Route: 049
     Dates: start: 20100128, end: 20100205

REACTIONS (1)
  - ORGANISING PNEUMONIA [None]
